FAERS Safety Report 21087283 (Version 1)
Quarter: 2022Q3

REPORT INFORMATION
  Report Type: Report from Study
  Country: NL (occurrence: NL)
  Receive Date: 20220715
  Receipt Date: 20220715
  Transmission Date: 20221026
  Serious: Yes (Hospitalization)
  Sender: FDA-Public Use
  Company Number: NL-MYLANLABS-2022M1078046

PATIENT
  Age: 19 Year
  Sex: Female

DRUGS (1)
  1. LAMOTRIGINE [Suspect]
     Active Substance: LAMOTRIGINE
     Indication: Product used for unknown indication
     Dosage: 1.4 MILLIGRAM/KILOGRAM
     Route: 048

REACTIONS (7)
  - Agitation [Unknown]
  - Overdose [Unknown]
  - Dysarthria [Unknown]
  - Dizziness [Unknown]
  - Tremor [Unknown]
  - Tachypnoea [Unknown]
  - Vision blurred [Unknown]
